FAERS Safety Report 5946250-4 (Version None)
Quarter: 2008Q4

REPORT INFORMATION
  Report Type: 
  Country: None (occurrence: None)
  Receive Date: 20081110
  Receipt Date: 20081030
  Transmission Date: 20090506
  Serious: Yes (Other)
  Sender: FDA-Public Use
  Company Number: US-ROCHE-503364

PATIENT
  Sex: Female
  Weight: 61.2 kg

DRUGS (8)
  1. ACCUTANE [Suspect]
     Route: 065
     Dates: start: 20011130, end: 20020601
  2. ACCUTANE [Suspect]
     Route: 065
     Dates: start: 20020601, end: 20021201
  3. CONTRACEPTIVE [Concomitant]
     Dosage: REPORTED AS: BIRTH CONTROL (UNKNOWN TYPE).
     Dates: start: 19850101, end: 19940101
  4. CONTRACEPTIVE [Concomitant]
     Dosage: REPORTED AS: BIRTH CONTROL (UNKNOWN TYPE).
     Dates: start: 19950101, end: 20000101
  5. CONTRACEPTIVE [Concomitant]
     Dosage: REPORTED AS: BIRTH CONTROL (UNKNOWN TYPE).
     Dates: start: 20010101, end: 20070101
  6. LEXAPRO [Concomitant]
     Indication: ANXIETY
     Dates: start: 20000101
  7. WELLBUTRIN [Concomitant]
     Indication: ANXIETY
  8. EFFEXOR XR [Concomitant]
     Indication: ANXIETY

REACTIONS (15)
  - BLOOD CHOLESTEROL INCREASED [None]
  - CHEST PAIN [None]
  - COLITIS [None]
  - COLITIS ULCERATIVE [None]
  - CROHN'S DISEASE [None]
  - DEPRESSION [None]
  - DERMAL CYST [None]
  - DIZZINESS [None]
  - HAEMANGIOMA [None]
  - HEADACHE [None]
  - HUNGER [None]
  - INFLAMMATORY BOWEL DISEASE [None]
  - MUSCULAR WEAKNESS [None]
  - SUICIDAL IDEATION [None]
  - SYNCOPE [None]
